FAERS Safety Report 26022354 (Version 3)
Quarter: 2025Q4

REPORT INFORMATION
  Report Type: Report from Study
  Country: AE (occurrence: AE)
  Receive Date: 20251110
  Receipt Date: 20251203
  Transmission Date: 20260118
  Serious: Yes (Hospitalization, Other)
  Sender: TAIHO ONCOLOGY INC
  Company Number: AE-SERVIER-S25016041

PATIENT
  Age: 55 Year
  Sex: Male

DRUGS (1)
  1. LONSURF [Suspect]
     Active Substance: TIPIRACIL HYDROCHLORIDE\TRIFLURIDINE
     Indication: Colorectal cancer
     Dosage: UNK
     Route: 048
     Dates: start: 202508

REACTIONS (10)
  - Blood creatinine increased [Unknown]
  - Laboratory test abnormal [Unknown]
  - Renal disorder [Unknown]
  - Stent malfunction [Unknown]
  - Haematuria [Unknown]
  - Fatigue [Unknown]
  - Malaise [Unknown]
  - Dehydration [Unknown]
  - Malignant neoplasm progression [Unknown]
  - Hepatic mass [Unknown]

NARRATIVE: CASE EVENT DATE: 20251118
